FAERS Safety Report 20675462 (Version 1)
Quarter: 2022Q2

REPORT INFORMATION
  Report Type: Spontaneous
  Country: US (occurrence: None)
  Receive Date: 20220404
  Receipt Date: 20220404
  Transmission Date: 20220721
  Serious: No
  Sender: FDA-Public Use
  Company Number: None

PATIENT
  Age: 29 Year
  Sex: Female
  Weight: 99.79 kg

DRUGS (1)
  1. BUPRENORPHINE\NALOXONE [Suspect]
     Active Substance: BUPRENORPHINE\NALOXONE
     Indication: Drug dependence
     Dosage: OTHER STRENGTH : 8MG-2MG;?OTHER QUANTITY : 1-2 X DAILY;?
     Dates: start: 2020, end: 2020

REACTIONS (5)
  - Peripheral swelling [None]
  - Peripheral swelling [None]
  - Pruritus [None]
  - Pruritus [None]
  - Feeling abnormal [None]
